FAERS Safety Report 25593845 (Version 1)
Quarter: 2025Q3

REPORT INFORMATION
  Report Type: Spontaneous
  Country: EU (occurrence: EU)
  Receive Date: 20250723
  Receipt Date: 20250723
  Transmission Date: 20251020
  Serious: Yes (Death, Other)
  Sender: BAXTER
  Company Number: EU-BAXTER-2025BAX018216

PATIENT
  Age: 50 Year
  Sex: Male

DRUGS (2)
  1. IFOSFAMIDE [Suspect]
     Active Substance: IFOSFAMIDE
     Indication: Peripheral T-cell lymphoma unspecified
     Route: 065
  2. METHOTREXATE [Concomitant]
     Active Substance: METHOTREXATE
     Indication: Peripheral T-cell lymphoma unspecified
     Route: 037

REACTIONS (3)
  - Peripheral T-cell lymphoma unspecified [Fatal]
  - Disease progression [Fatal]
  - Treatment failure [Unknown]
